FAERS Safety Report 10277624 (Version 1)
Quarter: 2014Q3

REPORT INFORMATION
  Report Type: Spontaneous
  Country: NL (occurrence: NL)
  Receive Date: 20140704
  Receipt Date: 20140704
  Transmission Date: 20150326
  Serious: Yes (Death)
  Sender: FDA-Public Use
  Company Number: NL-AMGEN-NLDSP2012086228

PATIENT
  Age: 84 Year
  Sex: Male

DRUGS (1)
  1. ARANESP [Suspect]
     Active Substance: DARBEPOETIN ALFA
     Indication: NEPHROGENIC ANAEMIA
     Dosage: 100 MUG, Q4WK
     Route: 058
     Dates: start: 20110112, end: 20120523

REACTIONS (1)
  - Death [Fatal]

NARRATIVE: CASE EVENT DATE: 20120523
